FAERS Safety Report 9239933 (Version 4)
Quarter: 2013Q3

REPORT INFORMATION
  Report Type: Report from Study
  Country: US (occurrence: US)
  Receive Date: 20130418
  Receipt Date: 20130710
  Transmission Date: 20140515
  Serious: Yes (Other)
  Sender: FDA-Public Use
  Company Number: US-ROCHE-1201697

PATIENT
  Age: 18 Year
  Sex: Female
  Weight: 59.02 kg

DRUGS (21)
  1. OMALIZUMAB [Suspect]
     Indication: ASTHMA
     Dosage: LAST DOSE PRIOR TO SAE: 125 MG ON 07/FEB/2013.
     Route: 058
     Dates: start: 20130207
  2. OMALIZUMAB [Suspect]
     Route: 058
     Dates: start: 20130221
  3. OMALIZUMAB [Suspect]
     Route: 058
     Dates: start: 20130307
  4. OMALIZUMAB [Suspect]
     Route: 058
     Dates: start: 20130321
  5. OMALIZUMAB [Suspect]
     Route: 058
     Dates: start: 20130404
  6. OMALIZUMAB [Suspect]
     Route: 058
     Dates: start: 20130418
  7. OMALIZUMAB [Suspect]
     Route: 058
     Dates: start: 20130503
  8. OMALIZUMAB [Suspect]
     Route: 058
     Dates: start: 20130516
  9. OMALIZUMAB [Suspect]
     Route: 058
     Dates: start: 20130530
  10. OMALIZUMAB [Suspect]
     Route: 058
     Dates: start: 20130606
  11. PROMETHAZINE [Concomitant]
     Indication: NAUSEA
  12. PREDNISONE [Concomitant]
     Indication: ASTHMA
  13. ALBUTEROL [Concomitant]
     Indication: ASTHMA
  14. SYMBICORT [Concomitant]
     Indication: ASTHMA
  15. PRILOSEC [Concomitant]
     Indication: GASTROOESOPHAGEAL REFLUX DISEASE
  16. SINGULAIR [Concomitant]
     Indication: ASTHMA
  17. ALLEGRA [Concomitant]
     Indication: ASTHMA
  18. PULMICORT [Concomitant]
     Indication: ASTHMA
  19. TYLENOL [Concomitant]
     Indication: HEADACHE
  20. ATROVENT [Concomitant]
     Indication: ASTHMA
  21. RHOGAM [Concomitant]

REACTIONS (5)
  - Amnesia [Recovered/Resolved]
  - Hypoaesthesia [Recovered/Resolved]
  - Fall [Unknown]
  - Ligament sprain [Unknown]
  - Exposure during pregnancy [Unknown]
